FAERS Safety Report 17511125 (Version 5)
Quarter: 2022Q1

REPORT INFORMATION
  Report Type: Spontaneous
  Country: PL (occurrence: PL)
  Receive Date: 20200306
  Receipt Date: 20220225
  Transmission Date: 20220423
  Serious: Yes (Death, Other)
  Sender: FDA-Public Use
  Company Number: PL-GRINDEKS-202001148

PATIENT
  Age: 64 Year
  Sex: Male

DRUGS (11)
  1. IBUPROFEN [Suspect]
     Active Substance: IBUPROFEN
     Indication: Pain
     Dosage: 800 MG 3 TIMES DAILY
  2. IBUPROFEN [Suspect]
     Active Substance: IBUPROFEN
     Indication: Analgesic therapy
     Dosage: 600 MG, TID (600, MG 3 TIMES DAILY  )
     Route: 065
  3. IBUPROFEN [Suspect]
     Active Substance: IBUPROFEN
     Dosage: 800 MG, TID
     Route: 065
  4. PREDNISONE [Suspect]
     Active Substance: PREDNISONE
     Indication: Pain
     Dosage: 40 MG DAILY
  5. PREDNISONE [Suspect]
     Active Substance: PREDNISONE
     Indication: Analgesic therapy
  6. MORPHINE [Suspect]
     Active Substance: MORPHINE
     Indication: Pain
     Dosage: TITRATED UP TO 200 MG PER DAY
     Route: 042
  7. MORPHINE [Suspect]
     Active Substance: MORPHINE
     Indication: Analgesic therapy
  8. FENTANYL [Suspect]
     Active Substance: FENTANYL
     Indication: Pain
     Dosage: 50 MICROGRAM, QH
  9. FENTANYL [Suspect]
     Active Substance: FENTANYL
     Indication: Analgesic therapy
  10. ERLOTINIB [Concomitant]
     Active Substance: ERLOTINIB
     Indication: Metastases to central nervous system
     Dosage: UNK
  11. ZOLEDRONIC ACID [Concomitant]
     Active Substance: ZOLEDRONIC ACID
     Dosage: 4 MG, UNK
     Route: 042

REACTIONS (6)
  - Disease progression [Fatal]
  - Drug ineffective [Fatal]
  - Drug tolerance increased [Unknown]
  - Drug abuse [Unknown]
  - Off label use [Unknown]
  - Intentional product misuse [Unknown]
